FAERS Safety Report 23985747 (Version 1)
Quarter: 2024Q2

REPORT INFORMATION
  Report Type: Spontaneous
  Country: PL (occurrence: PL)
  Receive Date: 20240618
  Receipt Date: 20240618
  Transmission Date: 20240716
  Serious: Yes (Other)
  Sender: FDA-Public Use
  Company Number: None

PATIENT
  Age: 55 Year
  Sex: Female
  Weight: 81 kg

DRUGS (1)
  1. ERBITUX [Suspect]
     Active Substance: CETUXIMAB
     Indication: Colon cancer
     Dosage: 960 MG, UNKNOWN
     Route: 042
     Dates: start: 20200309, end: 20200309

REACTIONS (2)
  - Asthenia [Unknown]
  - Skin disorder [Unknown]

NARRATIVE: CASE EVENT DATE: 20200323
